FAERS Safety Report 9425812 (Version 4)
Quarter: 2014Q2

REPORT INFORMATION
  Report Type: Spontaneous
  Country: US (occurrence: US)
  Receive Date: 20130729
  Receipt Date: 20140411
  Transmission Date: 20141212
  Serious: Yes (Death, Hospitalization)
  Sender: FDA-Public Use
  Company Number: US-B.I. PHARMACEUTICALS,INC./RIDGEFIELD-2013-BI-22177BP

PATIENT
  Sex: Male
  Weight: 58.06 kg

DRUGS (14)
  1. PRADAXA [Suspect]
     Indication: ATRIAL FIBRILLATION
     Dosage: 300 MG
     Route: 065
     Dates: start: 20110826, end: 20111109
  2. MEGESTROL [Concomitant]
     Dosage: 40 MG
     Route: 065
  3. PROMETHAZINE [Concomitant]
     Route: 048
  4. VITAMIN B12 [Concomitant]
     Route: 065
  5. METOPROLOL [Concomitant]
     Dosage: 25 MG
     Route: 065
  6. CRESTOR [Concomitant]
     Dosage: 20 MG
     Route: 065
  7. POTASSIUM [Concomitant]
     Dosage: 20 MEQ
     Route: 065
  8. AMIODARONE [Concomitant]
     Dosage: 400 MG
     Route: 065
  9. LASIX [Concomitant]
     Dosage: 20 MG
     Route: 065
  10. PRILOSEC [Concomitant]
     Dosage: 20 MG
     Route: 065
  11. ASPIRIN [Concomitant]
     Route: 065
  12. NEURONTIN [Concomitant]
     Dosage: 1600 MG
     Route: 065
  13. SERTRALINE [Concomitant]
     Dosage: 150 MG
     Route: 065
  14. LORTAB [Concomitant]
     Route: 065

REACTIONS (9)
  - Haemorrhage [Fatal]
  - Hypotension [Fatal]
  - Shock [Fatal]
  - Acute respiratory failure [Fatal]
  - Mitral valve incompetence [Unknown]
  - Coagulopathy [Unknown]
  - Renal failure acute [Unknown]
  - Haemorrhagic anaemia [Unknown]
  - Thrombocytopenia [Unknown]
